FAERS Safety Report 12889105 (Version 1)
Quarter: 2016Q4

REPORT INFORMATION
  Report Type: Spontaneous
  Country: US (occurrence: US)
  Receive Date: 20161027
  Receipt Date: 20161027
  Transmission Date: 20170207
  Serious: Yes (Life-Threatening, Other)
  Sender: FDA-Public Use
  Company Number: US-PFIZER INC-2016491621

PATIENT
  Age: 21 Year
  Sex: Female

DRUGS (1)
  1. FENTANYL. [Suspect]
     Active Substance: FENTANYL
     Dosage: 100 UG/HR
     Route: 048

REACTIONS (5)
  - Hypoventilation [Recovered/Resolved]
  - Coma [Recovered/Resolved]
  - Incorrect route of drug administration [Unknown]
  - Poisoning [Recovered/Resolved]
  - Drug abuse [Unknown]
